FAERS Safety Report 6916786-8 (Version None)
Quarter: 2010Q3

REPORT INFORMATION
  Report Type: 
  Country: None (occurrence: None)
  Receive Date: 20100805
  Receipt Date: 20100720
  Transmission Date: 20110219
  Serious: Yes (Hospitalization)
  Sender: FDA-Public Use
  Company Number: AUR-APL-2010-01906

PATIENT
  Age: 44 Year
  Sex: Male
  Weight: 65 kg

DRUGS (4)
  1. METFORMIN HCL [Suspect]
     Indication: DIABETES MELLITUS
     Dosage: 850MG, DAILY, UNK
     Dates: start: 20051003
  2. ZIPRASIDONE HCL CAPSULE, HARD [Suspect]
     Indication: SCHIZOPHRENIA
     Dosage: 60MG, BID, UNK
     Dates: start: 20040901, end: 20051218
  3. OMEPRAZOLE [Concomitant]
  4. LORAZEPAM [Concomitant]

REACTIONS (9)
  - APATHY [None]
  - BLOOD TRIGLYCERIDES INCREASED [None]
  - DEPRESSION [None]
  - DRUG INEFFECTIVE [None]
  - DRUG WITHDRAWAL SYNDROME [None]
  - GLUCOSE TOLERANCE IMPAIRED [None]
  - HYPERGLYCAEMIA [None]
  - LIBIDO INCREASED [None]
  - PRIAPISM [None]
